FAERS Safety Report 16183025 (Version 2)
Quarter: 2019Q2

REPORT INFORMATION
  Report Type: Spontaneous
  Country: None (occurrence: US)
  Receive Date: 20190411
  Receipt Date: 20190507
  Transmission Date: 20190711
  Serious: Yes (Other)
  Sender: FDA-Public Use
  Company Number: US-ACHAOGEN INC-US-ACHN-19-00004

PATIENT
  Age: 61 Year
  Sex: Female

DRUGS (6)
  1. LEVOTHYROXINE. [Concomitant]
     Active Substance: LEVOTHYROXINE
     Indication: PRODUCT USED FOR UNKNOWN INDICATION
  2. VITAMINS [Concomitant]
     Active Substance: VITAMINS
     Indication: PRODUCT USED FOR UNKNOWN INDICATION
  3. ZEMDRI [Suspect]
     Active Substance: PLAZOMICIN
     Indication: TRACHEOBRONCHITIS
  4. ZEMDRI [Suspect]
     Active Substance: PLAZOMICIN
     Indication: SINUSITIS
  5. ZEMDRI [Suspect]
     Active Substance: PLAZOMICIN
     Indication: PSEUDOMONAS INFECTION
  6. LEVOFLOXACIN. [Concomitant]
     Active Substance: LEVOFLOXACIN
     Indication: PRODUCT USED FOR UNKNOWN INDICATION

REACTIONS (6)
  - Nausea [Unknown]
  - Dehydration [Unknown]
  - Blood creatinine increased [Recovered/Resolved]
  - Vomiting [Unknown]
  - Product use in unapproved indication [Recovered/Resolved]
  - Acute kidney injury [Recovered/Resolved]
